FAERS Safety Report 4364265-7 (Version None)
Quarter: 2004Q2

REPORT INFORMATION
  Report Type: 
  Country: None (occurrence: None)
  Receive Date: 20040519
  Receipt Date: 20040510
  Transmission Date: 20050107
  Serious: Yes (Life-Threatening, Hospitalization, Other)
  Sender: FDA-Public Use
  Company Number: 2004-04-0210

PATIENT
  Age: 46 Year
  Sex: Female
  Weight: 86.637 kg

DRUGS (4)
  1. PEG-INTRON [Suspect]
     Indication: HEPATITIS C
     Dosage: 150 MCG QW  SUBCUTANEOUS
     Route: 058
     Dates: start: 20010909, end: 20010916
  2. REBETOL [Suspect]
     Indication: HEPATITIS C
     Dosage: 400 MG BID ORAL
     Route: 048
     Dates: start: 20010909, end: 20010921
  3. GLUCOPHAGE [Concomitant]
  4. AMARYL [Concomitant]

REACTIONS (9)
  - ABDOMINAL PAIN UPPER [None]
  - BLOOD GLUCOSE INCREASED [None]
  - DIFFUSE LARGE B-CELL LYMPHOMA [None]
  - HEPATIC MASS [None]
  - INFLUENZA LIKE ILLNESS [None]
  - JAUNDICE [None]
  - NON-HODGKIN'S LYMPHOMA STAGE II [None]
  - PRURITUS [None]
  - STEM CELL TRANSPLANT [None]
